FAERS Safety Report 11622408 (Version 1)
Quarter: 2015Q4

REPORT INFORMATION
  Report Type: Spontaneous
  Country: US (occurrence: US)
  Receive Date: 20151013
  Receipt Date: 20151013
  Transmission Date: 20160304
  Serious: No
  Sender: FDA-Public Use
  Company Number: US-JNJFOC-20150111694

PATIENT
  Age: 10 Month
  Sex: Male
  Weight: 8.62 kg

DRUGS (3)
  1. ANTIBIOTIC [Concomitant]
     Active Substance: UNSPECIFIED INGREDIENT
     Route: 065
  2. DIMETAPP [Concomitant]
     Active Substance: BROMPHENIRAMINE\PSEUDOEPHEDRINE
     Route: 065
  3. CHILDRENS TYLENOL [Suspect]
     Active Substance: ACETAMINOPHEN
     Indication: PRODUCT USED FOR UNKNOWN INDICATION
     Route: 048

REACTIONS (1)
  - Wrong drug administered [Unknown]
